FAERS Safety Report 16887676 (Version 1)
Quarter: 2019Q4

REPORT INFORMATION
  Report Type: Spontaneous
  Country: ES (occurrence: ES)
  Receive Date: 20191005
  Receipt Date: 20191005
  Transmission Date: 20200122
  Serious: Yes (Other)
  Sender: FDA-Public Use
  Company Number: ES-AUROBINDO-AUR-APL-2019-064412

PATIENT
  Age: 56 Year
  Sex: Female

DRUGS (1)
  1. DULOXETINE. [Suspect]
     Active Substance: DULOXETINE
     Indication: PRODUCT USED FOR UNKNOWN INDICATION
     Dosage: 60 MILLIGRAM
     Route: 065
     Dates: start: 20190703, end: 201908

REACTIONS (1)
  - Face oedema [Unknown]

NARRATIVE: CASE EVENT DATE: 201907
